FAERS Safety Report 11617646 (Version 1)
Quarter: 2015Q4

REPORT INFORMATION
  Report Type: Spontaneous
  Country: TW (occurrence: TW)
  Receive Date: 20151009
  Receipt Date: 20151009
  Transmission Date: 20160304
  Serious: Yes (Other)
  Sender: FDA-Public Use
  Company Number: TW-ELI_LILLY_AND_COMPANY-TW201510001614

PATIENT

DRUGS (2)
  1. PEMETREXED [Suspect]
     Active Substance: PEMETREXED
     Indication: LUNG ADENOCARCINOMA METASTATIC
     Dosage: UNK, UNKNOWN
     Route: 065
  2. GEFITINIB [Concomitant]
     Active Substance: GEFITINIB
     Indication: LUNG ADENOCARCINOMA METASTATIC
     Dosage: UNK, UNKNOWN
     Route: 065

REACTIONS (1)
  - Hepatotoxicity [Unknown]
